FAERS Safety Report 5916591-5 (Version None)
Quarter: 2008Q4

REPORT INFORMATION
  Report Type: 
  Country: None (occurrence: None)
  Receive Date: 20081013
  Receipt Date: 20081008
  Transmission Date: 20090506
  Serious: Yes (Life-Threatening)
  Sender: FDA-Public Use
  Company Number: CH-MERCK-0809CHE00020

PATIENT
  Age: 53 Year
  Sex: Male
  Weight: 72 kg

DRUGS (1)
  1. ZOCOR [Suspect]
     Indication: HYPERCHOLESTEROLAEMIA
     Route: 048
     Dates: start: 19980101

REACTIONS (1)
  - BLADDER CANCER [None]
